FAERS Safety Report 5901502-9 (Version None)
Quarter: 2008Q3

REPORT INFORMATION
  Report Type: 
  Country: None (occurrence: None)
  Receive Date: 20080926
  Receipt Date: 20080926
  Transmission Date: 20090109
  Serious: Yes (Life-Threatening)
  Sender: FDA-Public Use
  Company Number: None

PATIENT
  Sex: Female
  Weight: 56 kg

DRUGS (1)
  1. RITUXAN [Suspect]
     Indication: SYSTEMIC LUPUS ERYTHEMATOSUS
     Dosage: 1000 MG IV
     Route: 042
     Dates: start: 20080925

REACTIONS (8)
  - DRUG EFFECT DECREASED [None]
  - DYSPNOEA [None]
  - MALAISE [None]
  - OXYGEN SATURATION DECREASED [None]
  - PRURITUS [None]
  - SWELLING FACE [None]
  - VOMITING [None]
  - WHEEZING [None]
